FAERS Safety Report 11574197 (Version 1)
Quarter: 2015Q3

REPORT INFORMATION
  Report Type: Spontaneous
  Country: US (occurrence: US)
  Receive Date: 20150930
  Receipt Date: 20150930
  Transmission Date: 20151125
  Serious: Yes (Other)
  Sender: FDA-Public Use
  Company Number: US-AMGEN-USASP2015100718

PATIENT
  Sex: Female

DRUGS (8)
  1. EPOGEN [Suspect]
     Active Substance: ERYTHROPOIETIN
     Dosage: 1000 UNIT, PER WEEK
     Route: 065
     Dates: start: 201303
  2. EPOGEN [Suspect]
     Active Substance: ERYTHROPOIETIN
     Dosage: 6000 UNIT, 3 TIMES/WK
     Route: 065
  3. NORMAL SALINE [Concomitant]
     Active Substance: SODIUM CHLORIDE
     Dosage: 500 CC
  4. RINGERS LACTATE [Suspect]
     Active Substance: CALCIUM CHLORIDE\POTASSIUM CHLORIDE\SODIUM CHLORIDE\SODIUM LACTATE
     Indication: PRODUCT USED FOR UNKNOWN INDICATION
     Dosage: 3000 UNIT, UNK
     Route: 065
  5. EPOGEN [Suspect]
     Active Substance: ERYTHROPOIETIN
     Indication: CHRONIC KIDNEY DISEASE
     Dosage: UNK, UNK
     Route: 065
     Dates: start: 200810
  6. EPOGEN [Suspect]
     Active Substance: ERYTHROPOIETIN
     Dosage: 15000 UNIT, UNK
     Route: 065
  7. EPOGEN [Suspect]
     Active Substance: ERYTHROPOIETIN
     Dosage: 12000 UNIT, ONCE WEEKLY
     Route: 065
  8. EPOGEN [Suspect]
     Active Substance: ERYTHROPOIETIN
     Dosage: 2000 UNIT, PER WEEK
     Route: 065

REACTIONS (9)
  - Dyspnoea [Recovering/Resolving]
  - Adverse event [Unknown]
  - Drug ineffective [None]
  - Haemoglobin decreased [Unknown]
  - Blindness [Recovering/Resolving]
  - Retinal haemorrhage [Unknown]
  - Weight abnormal [Unknown]
  - Drug effect decreased [Unknown]
  - Fluid retention [Unknown]
